FAERS Safety Report 5255794-2 (Version None)
Quarter: 2007Q1

REPORT INFORMATION
  Report Type: 
  Country: None (occurrence: None)
  Receive Date: 20070228
  Receipt Date: 20070216
  Transmission Date: 20070707
  Serious: Yes (Other)
  Sender: FDA-Public Use
  Company Number: 2007AP000193

PATIENT
  Sex: Male

DRUGS (2)
  1. PAROXETINE HCL [Suspect]
     Indication: ANXIETY
     Dosage: 20 MG;PO;QD
     Route: 048
     Dates: start: 19970212, end: 20040101
  2. PAROXETINE HCL [Suspect]
     Indication: OBSESSIVE-COMPULSIVE DISORDER
     Dosage: 20 MG;PO;QD
     Route: 048
     Dates: start: 19970212, end: 20040101

REACTIONS (5)
  - AGGRESSION [None]
  - DRUG WITHDRAWAL SYNDROME [None]
  - PHYSICAL ASSAULT [None]
  - TRANCE [None]
  - WEIGHT INCREASED [None]
